FAERS Safety Report 24630924 (Version 1)
Quarter: 2024Q4

REPORT INFORMATION
  Report Type: Other
  Country: TR (occurrence: TR)
  Receive Date: 20241118
  Receipt Date: 20241118
  Transmission Date: 20250115
  Serious: Yes (Hospitalization, Other)
  Sender: WES PHARMA INC
  Company Number: TR-WES Pharma Inc-2165257

PATIENT
  Age: 19 Year
  Sex: Male

DRUGS (4)
  1. METHYLPHENIDATE HYDROCHLORIDE [Suspect]
     Active Substance: METHYLPHENIDATE HYDROCHLORIDE
     Indication: Product used for unknown indication
  2. VALPROATE SODIUM [Interacting]
     Active Substance: VALPROATE SODIUM
  3. CLOZAPINE [Interacting]
     Active Substance: CLOZAPINE
  4. LURASIDONE HYDROCHLORIDE [Interacting]
     Active Substance: LURASIDONE HYDROCHLORIDE

REACTIONS (4)
  - Lumbosacral radiculoplexus neuropathy [Recovering/Resolving]
  - Drug interaction [Unknown]
  - Gait disturbance [Recovering/Resolving]
  - Muscle atrophy [Recovering/Resolving]
